FAERS Safety Report 16364556 (Version 4)
Quarter: 2019Q3

REPORT INFORMATION
  Report Type: Spontaneous
  Country: JP (occurrence: JP)
  Receive Date: 20190528
  Receipt Date: 20190718
  Transmission Date: 20191004
  Serious: Yes (Life-Threatening, Other)
  Sender: FDA-Public Use
  Company Number: JP-UCBSA-2019021711

PATIENT
  Age: 82 Year
  Sex: Male

DRUGS (4)
  1. E KEPPRA [Suspect]
     Active Substance: LEVETIRACETAM
     Indication: EPILEPSY
  2. FOSTOIN [Suspect]
     Active Substance: FOSPHENYTOIN SODIUM
     Indication: PRODUCT USED FOR UNKNOWN INDICATION
     Dosage: 1500 MILLIGRAM, ONCE DAILY (QD)
     Route: 041
     Dates: start: 20190502, end: 20190502
  3. E KEPPRA [Suspect]
     Active Substance: LEVETIRACETAM
     Indication: OFF LABEL USE
  4. E KEPPRA [Suspect]
     Active Substance: LEVETIRACETAM
     Indication: SEIZURE
     Dosage: 500 MILLIGRAM DAILY
     Route: 041
     Dates: start: 20190502, end: 20190502

REACTIONS (3)
  - Cardiac arrest [Recovering/Resolving]
  - Blood pressure decreased [Recovering/Resolving]
  - Off label use [Unknown]

NARRATIVE: CASE EVENT DATE: 20190503
